FAERS Safety Report 7094718-2 (Version None)
Quarter: 2010Q4

REPORT INFORMATION
  Report Type: 
  Country: None (occurrence: None)
  Receive Date: 20101110
  Receipt Date: 20080927
  Transmission Date: 20110411
  Serious: No
  Sender: FDA-Public Use
  Company Number: US-KINGPHARMUSA00001-K200800013

PATIENT
  Sex: Female
  Weight: 59.864 kg

DRUGS (9)
  1. CYTOMEL [Suspect]
     Indication: HYPOTHYROIDISM
     Dosage: 25 MCG, QD
     Route: 048
     Dates: start: 20020101
  2. LEVOXYL [Suspect]
     Indication: HYPOTHYROIDISM
     Dosage: 137 MCG, QD
     Route: 048
     Dates: start: 20000101
  3. PREFEST [Suspect]
     Indication: OESTROGEN REPLACEMENT THERAPY
     Dosage: UNK, UNK
     Route: 048
     Dates: start: 20030101
  4. ACTIVELLA       /00876401/ [Concomitant]
     Indication: OESTROGEN REPLACEMENT THERAPY
     Dosage: UNK, UNK
     Route: 048
  5. VIVELLE  DOT     /00045401/ [Concomitant]
     Indication: OESTROGEN REPLACEMENT THERAPY
     Route: 023
  6. VITAMINS [Concomitant]
     Indication: VITAMIN SUPPLEMENTATION
     Dosage: UNK, QD
     Route: 048
  7. CALCIUM [Concomitant]
     Indication: MINERAL SUPPLEMENTATION
     Dosage: UNK, QD
     Route: 048
  8. PREMPRO [Concomitant]
     Indication: OESTROGEN REPLACEMENT THERAPY
     Route: 048
     Dates: start: 20071201
  9. PREMARIN [Concomitant]
     Indication: OESTROGEN REPLACEMENT THERAPY
     Route: 061

REACTIONS (15)
  - BODY TEMPERATURE FLUCTUATION [None]
  - DRUG INEFFECTIVE [None]
  - EYE SWELLING [None]
  - FATIGUE [None]
  - FLUID RETENTION [None]
  - HYPERTHYROIDISM [None]
  - JOINT SWELLING [None]
  - OESTROGEN DEFICIENCY [None]
  - ORAL DISCOMFORT [None]
  - PAIN OF SKIN [None]
  - PERIPHERAL COLDNESS [None]
  - RASH MACULAR [None]
  - SKIN NODULE [None]
  - TRI-IODOTHYRONINE INCREASED [None]
  - WEIGHT INCREASED [None]
